FAERS Safety Report 9460478 (Version 1)
Quarter: 2013Q3

REPORT INFORMATION
  Report Type: Spontaneous
  Country: IE (occurrence: IE)
  Receive Date: 20130815
  Receipt Date: 20130815
  Transmission Date: 20140515
  Serious: Yes (Death, Other)
  Sender: FDA-Public Use
  Company Number: PHHY2013IE087432

PATIENT
  Age: 60 Year
  Sex: Female

DRUGS (4)
  1. PREDNISOLONE [Suspect]
     Indication: LIVER TRANSPLANT
     Dosage: 5 MG, UNK
  2. MYCOPHENOLATE MOFETIL [Suspect]
     Indication: LIVER TRANSPLANT
  3. SULFAMETHOXAZOLE+TRIMETHOPRIM [Suspect]
     Indication: PNEUMOCYSTIS JIROVECII PNEUMONIA
  4. SIROLIMUS [Suspect]
     Indication: LIVER TRANSPLANT

REACTIONS (5)
  - Pneumocystis jirovecii pneumonia [Fatal]
  - Pyrexia [Fatal]
  - Diarrhoea [Fatal]
  - Dyspnoea [Fatal]
  - Drug effect incomplete [Unknown]
